FAERS Safety Report 6637567-9 (Version None)
Quarter: 2010Q1

REPORT INFORMATION
  Report Type: 
  Country: None (occurrence: None)
  Receive Date: 20100317
  Receipt Date: 20100312
  Transmission Date: 20100710
  Serious: Yes (Other)
  Sender: FDA-Public Use
  Company Number: US-BAYER-201016623NA

PATIENT
  Age: 22 Year
  Sex: Female

DRUGS (1)
  1. YAZ [Suspect]
     Indication: DRUG USE FOR UNKNOWN INDICATION
     Route: 048
     Dates: start: 20070801, end: 20090701

REACTIONS (4)
  - ABDOMINAL PAIN [None]
  - CHOLELITHIASIS [None]
  - NAUSEA [None]
  - VOMITING [None]
